FAERS Safety Report 5713300-X (Version None)
Quarter: 2008Q2

REPORT INFORMATION
  Report Type: 
  Country: None (occurrence: None)
  Receive Date: 20080418
  Receipt Date: 20080404
  Transmission Date: 20081010
  Serious: Yes (Hospitalization)
  Sender: FDA-Public Use
  Company Number: DSA_31688_2008

PATIENT
  Age: 71 Year
  Sex: Male

DRUGS (7)
  1. ENALAPRIL MALEATE W/ HYDROCHLOROTIAZIDE [Suspect]
     Indication: HYPERTENSION
     Dosage: (20-12.5 MG (FREQUENCY UNKNOWN) ORAL)
     Route: 048
     Dates: end: 20061007
  2. GENTAMICIN [Suspect]
     Indication: MONARTHRITIS
     Dosage: (DF INTRAVENOUS (NOT OTHERWISE SPECIFIED))
     Route: 042
     Dates: start: 20061002, end: 20061007
  3. CLOXACILLIN SODIUM (CLOXACILLIN IV) [Suspect]
     Indication: MONARTHRITIS
     Dosage: (DF INTRAVENOUS (NOT OTHERWISE SPECIFIED)
     Route: 042
     Dates: start: 20061005, end: 20061007
  4. AMLODIPINE BESYLATE [Concomitant]
  5. BUDESONIDE W/FORMOTEROL FUMARATE [Concomitant]
  6. ALBUTEROL SULFATE [Concomitant]
  7. AMOXICILLIN + CLAVULANATE POTASSIUM [Concomitant]

REACTIONS (2)
  - ANGIOEDEMA [None]
  - MONARTHRITIS [None]
